FAERS Safety Report 12084922 (Version 2)
Quarter: 2016Q1

REPORT INFORMATION
  Report Type: Report from Study
  Country: US (occurrence: US)
  Receive Date: 20160217
  Receipt Date: 20160224
  Transmission Date: 20160526
  Serious: Yes (Death, Life-Threatening, Hospitalization, Other)
  Sender: FDA-Public Use
  Company Number: US-BRISTOL-MYERS SQUIBB COMPANY-BMS-2016-011704

PATIENT
  Age: 52 Year
  Sex: Male
  Weight: 149 kg

DRUGS (2)
  1. NIVOLUMAB [Suspect]
     Active Substance: NIVOLUMAB
     Indication: METASTATIC MALIGNANT MELANOMA
     Dosage: 1 MG/G, TOTAL DOSE: 146,C2D1 RECEIVED ON 28-OCT-2015
     Route: 042
     Dates: start: 20151008
  2. IPILIMUMAB [Suspect]
     Active Substance: IPILIMUMAB
     Indication: METASTATIC MALIGNANT MELANOMA
     Dosage: 3 MG/KG, TOTAL DOSE: 447,C2D1 RECEIVED ON 28-OCT-2015
     Route: 042
     Dates: start: 20151008

REACTIONS (3)
  - Colitis [Fatal]
  - Intestinal perforation [Fatal]
  - Acute kidney injury [Not Recovered/Not Resolved]

NARRATIVE: CASE EVENT DATE: 20151108
